FAERS Safety Report 5897593-4 (Version None)
Quarter: 2008Q3

REPORT INFORMATION
  Report Type: 
  Country: None (occurrence: None)
  Receive Date: 20080923
  Receipt Date: 20080908
  Transmission Date: 20090109
  Serious: Yes (Hospitalization)
  Sender: FDA-Public Use
  Company Number: 2007S1011406

PATIENT
  Age: 13 Year
  Sex: Male

DRUGS (2)
  1. DICLOFENAC SODIUM [Suspect]
     Indication: ANALGESIA
     Dosage: 50 MG;Q8H;ORAL
     Route: 048
  2. DESMOPRESSIN ACETATE [Concomitant]

REACTIONS (2)
  - DIABETES INSIPIDUS [None]
  - RENAL IMPAIRMENT [None]
